FAERS Safety Report 9920836 (Version 1)
Quarter: 2014Q1

REPORT INFORMATION
  Report Type: Spontaneous
  Country: AU (occurrence: AU)
  Receive Date: 20140225
  Receipt Date: 20140225
  Transmission Date: 20141002
  Serious: Yes (Other)
  Sender: FDA-Public Use
  Company Number: AU-ROCHE-1351173

PATIENT
  Sex: Female

DRUGS (10)
  1. MYCOPHENOLATE MOFETIL [Suspect]
     Indication: PRODUCT USED FOR UNKNOWN INDICATION
     Dosage: DOSE UNSPECIFIED
     Route: 065
  2. AMLODIPINE [Suspect]
     Indication: HYPERTENSION
     Dosage: DOSE UNSPECIFIED
     Route: 065
  3. ASPIRIN [Suspect]
     Indication: PRE-ECLAMPSIA
     Dosage: DOSE UNSPECIFIED
     Route: 065
  4. CANDESARTAN CILEXETIL [Suspect]
     Indication: HYPERTENSION
     Dosage: DOSE UNSPECIFIED
     Route: 065
  5. HYDRALAZINE HYDROCHLORIDE [Suspect]
     Indication: HYPERTENSION
     Dosage: DOSE UNSPECIFIED
     Route: 065
  6. LABETALOL HYDROCHLORIDE [Suspect]
     Indication: HYPERTENSION
     Dosage: DOSE UNSPECIFIED
     Route: 065
  7. METHYLDOPA [Suspect]
     Indication: HYPERTENSION
     Dosage: DOSE UNSPEC
     Route: 065
  8. PERINDOPRIL [Suspect]
     Indication: HYPERTENSION
     Dosage: DOSE UNSPECIFIED
     Route: 065
  9. NIFEDIPINE [Suspect]
     Indication: HYPERTENSION
     Dosage: DOSE UNSPECIFIED
     Route: 065
  10. ENOXAPARIN [Suspect]
     Indication: PRE-ECLAMPSIA
     Route: 065

REACTIONS (2)
  - Premature baby [Unknown]
  - Maternal exposure timing unspecified [Unknown]
